FAERS Safety Report 17424121 (Version 1)
Quarter: 2020Q1

REPORT INFORMATION
  Report Type: Spontaneous
  Country: FR (occurrence: FR)
  Receive Date: 20200217
  Receipt Date: 20200217
  Transmission Date: 20200409
  Serious: Yes (Hospitalization)
  Sender: FDA-Public Use
  Company Number: FR-TEVA-2020-FR-1186714

PATIENT
  Age: 59 Year
  Sex: Male
  Weight: 98.5 kg

DRUGS (13)
  1. POSACONAZOLE [Concomitant]
     Active Substance: POSACONAZOLE
  2. FOLINATE DE CALCIUM [Concomitant]
     Active Substance: LEUCOVORIN CALCIUM
  3. TRAMADOL (CHLORHYDRATE DE) [Concomitant]
     Active Substance: TRAMADOL HYDROCHLORIDE
  4. BACTRIM [Concomitant]
     Active Substance: SULFAMETHOXAZOLE\TRIMETHOPRIM
  5. COLECALCIFEROL [Concomitant]
     Active Substance: CHOLECALCIFEROL
  6. ZOPICLONE [Concomitant]
     Active Substance: ZOPICLONE
  7. PHYTOMENADIONE [Concomitant]
     Active Substance: PHYTONADIONE
  8. VALACICLOVIR [Concomitant]
     Active Substance: VALACYCLOVIR HYDROCHLORIDE
  9. PANTOPRAZOLE [Concomitant]
     Active Substance: PANTOPRAZOLE
  10. PREDNISONE. [Suspect]
     Active Substance: PREDNISONE
     Indication: GRAFT VERSUS HOST DISEASE
     Dosage: 100 MG
     Route: 048
     Dates: start: 20191219, end: 20200113
  11. ALFUZOSINE (CHLORHYDRATE D^) [Concomitant]
     Active Substance: ALFUZOSIN HYDROCHLORIDE
  12. AMOXICILLINE [Concomitant]
     Active Substance: AMOXICILLIN
  13. JAKAVI [Concomitant]
     Active Substance: RUXOLITINIB

REACTIONS (3)
  - Hypomania [Recovered/Resolved]
  - Compulsive shopping [Recovered/Resolved]
  - Delirium [Recovered/Resolved]

NARRATIVE: CASE EVENT DATE: 20200108
